FAERS Safety Report 15409049 (Version 1)
Quarter: 2018Q3

REPORT INFORMATION
  Report Type: Report from Study
  Country: US (occurrence: US)
  Receive Date: 20180920
  Receipt Date: 20180920
  Transmission Date: 20181010
  Serious: Yes (Other)
  Sender: FDA-Public Use
  Company Number: US-SA-2018SA238471

PATIENT
  Age: 62 Year
  Sex: Female

DRUGS (1)
  1. INSULIN GLARGINE/LIXISENATIDE [Suspect]
     Active Substance: INSULIN GLARGINE\LIXISENATIDE
     Dosage: UNK UNK, HS
     Route: 065
     Dates: start: 20170607

REACTIONS (6)
  - Peripheral swelling [Recovering/Resolving]
  - Cellulitis [Unknown]
  - Pain in extremity [Unknown]
  - Localised infection [Unknown]
  - Drug dispensing error [Unknown]
  - Toe amputation [Unknown]
